FAERS Safety Report 6701579-7 (Version None)
Quarter: 2010Q2

REPORT INFORMATION
  Report Type: 
  Country: None (occurrence: None)
  Receive Date: 20100429
  Receipt Date: 20100426
  Transmission Date: 20101027
  Serious: Yes (Life-Threatening, Hospitalization)
  Sender: FDA-Public Use
  Company Number: ES-SANOFI-AVENTIS-2010SA023947

PATIENT
  Age: 87 Year
  Sex: Female

DRUGS (5)
  1. CLOPIDOGREL BISULFATE [Suspect]
     Indication: ATRIAL FIBRILLATION
     Route: 048
     Dates: start: 20010410, end: 20091013
  2. SERTRALINE HCL [Interacting]
     Indication: DEPRESSION
     Route: 048
     Dates: start: 20081001
  3. DIGOXIN [Interacting]
     Indication: ATRIAL FIBRILLATION
     Route: 048
     Dates: start: 20091010
  4. ALDOCUMAR [Interacting]
     Indication: ISCHAEMIC CARDIOMYOPATHY
     Route: 048
     Dates: start: 20091014, end: 20091028
  5. SEPTRIN FORTE [Interacting]
     Indication: RESPIRATORY TRACT INFECTION
     Route: 048
     Dates: start: 20091008, end: 20091024

REACTIONS (4)
  - DRUG INTERACTION [None]
  - INTERNATIONAL NORMALISED RATIO INCREASED [None]
  - OFF LABEL USE [None]
  - UPPER GASTROINTESTINAL HAEMORRHAGE [None]
